FAERS Safety Report 4764056-9 (Version None)
Quarter: 2005Q3

REPORT INFORMATION
  Report Type: 
  Country: None (occurrence: None)
  Receive Date: 20050906
  Receipt Date: 20050824
  Transmission Date: 20060218
  Serious: Yes (Other)
  Sender: FDA-Public Use
  Company Number: 2005120449

PATIENT
  Age: 52 Year
  Sex: Female
  Weight: 83.9154 kg

DRUGS (4)
  1. NEURONTIN [Suspect]
     Indication: MOOD SWINGS
     Dosage: 1200 MG (300 MG, 4 IN 1 D)
     Dates: start: 20040701, end: 20050801
  2. GLYBURIDE [Concomitant]
  3. VYTORIN (EZETIMIBE, SIMVASTTIN) [Concomitant]
  4. ACTOS [Concomitant]

REACTIONS (5)
  - AFFECTIVE DISORDER [None]
  - ARACHNOID CYST [None]
  - BRUXISM [None]
  - CONDITION AGGRAVATED [None]
  - TOOTH DISORDER [None]
